FAERS Safety Report 8132003-8 (Version None)
Quarter: 2012Q1

REPORT INFORMATION
  Report Type: 
  Country: None (occurrence: None)
  Receive Date: 20120207
  Receipt Date: 20120123
  Transmission Date: 20120608
  Serious: Yes (Other)
  Sender: FDA-Public Use
  Company Number: JPI-P-016869

PATIENT
  Age: 38 Year
  Sex: Male
  Weight: 84.369 kg

DRUGS (7)
  1. PAROXETINE [Concomitant]
  2. TOPIRAMATE [Concomitant]
  3. XYREM [Suspect]
     Indication: CATAPLEXY
     Dosage: ORAL
     Route: 048
     Dates: start: 20050915
  4. OMEPRAZOLE [Concomitant]
  5. DICYCLOMINE [Concomitant]
  6. ATORVASTATIN CALCIUM [Suspect]
     Indication: BLOOD CHOLESTEROL INCREASED
     Dates: start: 20100101, end: 20110826
  7. LISINOPRIL [Concomitant]

REACTIONS (12)
  - BLOOD CHOLESTEROL INCREASED [None]
  - AMMONIA INCREASED [None]
  - LIVER INJURY [None]
  - HIATUS HERNIA [None]
  - PAIN [None]
  - HAEMATOCHEZIA [None]
  - VOMITING [None]
  - HAEMORRHAGE [None]
  - BENIGN GASTRIC NEOPLASM [None]
  - WEIGHT DECREASED [None]
  - SOMNOLENCE [None]
  - DYSPNOEA EXERTIONAL [None]
